FAERS Safety Report 7324450-9 (Version None)
Quarter: 2011Q1

REPORT INFORMATION
  Report Type: 
  Country: None (occurrence: None)
  Receive Date: 20110301
  Receipt Date: 20110222
  Transmission Date: 20110831
  Serious: Yes (Other)
  Sender: FDA-Public Use
  Company Number: US-PFIZER INC-2010117731

PATIENT
  Sex: Female
  Weight: 61.22 kg

DRUGS (13)
  1. XYZAL [Concomitant]
     Indication: HYPERSENSITIVITY
     Dosage: 5 MG, 1X/DAY
     Route: 048
     Dates: start: 20100901
  2. EXELON [Concomitant]
     Indication: MEMORY IMPAIRMENT
     Dosage: UNK
     Route: 062
  3. LYRICA [Suspect]
     Indication: NERVE COMPRESSION
     Dosage: 50 MG, 2X/DAY
     Route: 048
     Dates: start: 20100701
  4. LYRICA [Suspect]
     Indication: PARAESTHESIA
  5. LYRICA [Suspect]
     Indication: HYPOAESTHESIA
  6. ACTONEL [Concomitant]
     Indication: BONE DENSITY ABNORMAL
     Dosage: UNK
     Route: 048
     Dates: start: 20100913
  7. LYRICA [Suspect]
     Indication: PAIN IN EXTREMITY
  8. PERCOCET [Concomitant]
     Indication: BACK PAIN
     Dosage: 5/325MG, AS NEEDED
     Route: 048
  9. LYRICA [Suspect]
     Indication: NEUROPATHY PERIPHERAL
     Dosage: 50 MG, 3X/DAY
     Route: 048
     Dates: start: 20100701, end: 20100101
  10. LYRICA [Suspect]
     Indication: NECK PAIN
  11. ULTRAM [Concomitant]
     Dosage: UNK
  12. LYRICA [Suspect]
     Indication: MUSCULOSKELETAL PAIN
  13. LYRICA [Suspect]
     Indication: ARTHRALGIA

REACTIONS (9)
  - LOSS OF CONSCIOUSNESS [None]
  - DISORIENTATION [None]
  - SOMNOLENCE [None]
  - GAIT DISTURBANCE [None]
  - JOINT INSTABILITY [None]
  - DIZZINESS [None]
  - MUSCULAR WEAKNESS [None]
  - HYPOAESTHESIA [None]
  - FALL [None]
